FAERS Safety Report 6578378-2 (Version None)
Quarter: 2010Q1

REPORT INFORMATION
  Report Type: 
  Country: None (occurrence: None)
  Receive Date: 20100211
  Receipt Date: 20100201
  Transmission Date: 20100710
  Serious: Yes (Death, Other)
  Sender: FDA-Public Use
  Company Number: GB-PFIZER INC-2010013354

PATIENT
  Sex: Female

DRUGS (5)
  1. ACETYLSALICYLIC ACID [Suspect]
     Dosage: UNK
     Dates: start: 20090410
  2. HEPARIN SODIUM [Suspect]
     Dosage: UNK
     Dates: start: 20090410
  3. BIVALIRUDIN [Suspect]
     Indication: ANGINA PECTORIS
     Dosage: UNK
     Route: 042
     Dates: start: 20090410, end: 20090410
  4. CLOPIDOGREL [Suspect]
     Dosage: 75 MG, UNK
     Dates: start: 20090410
  5. REOPRO [Suspect]

REACTIONS (3)
  - CORONARY ARTERY THROMBOSIS [None]
  - PUNCTURE SITE HAEMORRHAGE [None]
  - SUBDURAL HAEMORRHAGE [None]
